FAERS Safety Report 4958403-2 (Version None)
Quarter: 2006Q1

REPORT INFORMATION
  Report Type: 
  Country: None (occurrence: None)
  Receive Date: 20060329
  Receipt Date: 20060329
  Transmission Date: 20060701
  Serious: No
  Sender: FDA-Public Use
  Company Number: None

PATIENT
  Sex: Female
  Weight: 116.5744 kg

DRUGS (6)
  1. PRILOSEC [Suspect]
     Indication: GASTROOESOPHAGEAL REFLUX DISEASE
     Dosage: ONCE PO Q 24
     Route: 048
     Dates: start: 20060313
  2. PRILOSEC [Suspect]
     Indication: GASTROOESOPHAGEAL REFLUX DISEASE
     Dosage: ONCE PO Q 24
     Route: 048
     Dates: start: 20060314
  3. AMOXICILLIN [Concomitant]
  4. ELAVIL [Concomitant]
  5. ORTHO TRI-CYCLEN LO [Concomitant]
  6. ULTRAM [Concomitant]

REACTIONS (1)
  - ERYTHEMA [None]
